FAERS Safety Report 18251303 (Version 1)
Quarter: 2020Q3

REPORT INFORMATION
  Report Type: Other
  Country: US (occurrence: US)
  Receive Date: 20200910
  Receipt Date: 20200910
  Transmission Date: 20201103
  Serious: Yes (Other)
  Sender: FDA-Public Use
  Company Number: US-ROCHE-1453902

PATIENT
  Sex: Female
  Weight: 95.79 kg

DRUGS (8)
  1. RITUXAN [Suspect]
     Active Substance: RITUXIMAB
     Route: 042
     Dates: start: 20180208
  2. TYLENOL [Concomitant]
     Active Substance: ACETAMINOPHEN
     Route: 048
  3. NORMAL SALINE [Concomitant]
     Active Substance: SODIUM CHLORIDE
     Route: 042
  4. RITUXAN [Suspect]
     Active Substance: RITUXIMAB
     Indication: PEMPHIGUS
     Dosage: THERAPY RECEIVED DATES:  05/DEC/2011, 06/DEC/2011, 12/DEC/2011, 30/DEC/2011, 03/JAN/2012, 18/JAN/201
     Route: 042
  5. BENADRYL [Suspect]
     Active Substance: DIPHENHYDRAMINE HYDROCHLORIDE
     Indication: PRODUCT USED FOR UNKNOWN INDICATION
     Route: 042
  6. ATIVAN [Concomitant]
     Active Substance: LORAZEPAM
     Route: 042
  7. RITUXAN [Suspect]
     Active Substance: RITUXIMAB
     Route: 042
     Dates: start: 20181109
  8. RITUXAN [Suspect]
     Active Substance: RITUXIMAB
     Route: 042
     Dates: start: 20180405

REACTIONS (14)
  - Ulcer haemorrhage [Unknown]
  - Peripheral swelling [Unknown]
  - Sinusitis [Unknown]
  - Acne [Unknown]
  - Fatigue [Unknown]
  - Pain [Unknown]
  - Skin ulcer [Not Recovered/Not Resolved]
  - Malaise [Unknown]
  - Sinus disorder [Unknown]
  - Arthralgia [Unknown]
  - Rash [Unknown]
  - Infusion related reaction [Unknown]
  - Off label use [Unknown]
  - Blood pressure increased [Recovering/Resolving]
